FAERS Safety Report 6143358-8 (Version None)
Quarter: 2009Q2

REPORT INFORMATION
  Report Type: 
  Country: None (occurrence: None)
  Receive Date: 20090403
  Receipt Date: 20090402
  Transmission Date: 20091009
  Serious: Yes (Hospitalization)
  Sender: FDA-Public Use
  Company Number: US-ROXANE LABORATORIES, INC.-2009-RO-00325RO

PATIENT
  Age: 51 Year
  Sex: Female

DRUGS (7)
  1. MORPHINE [Suspect]
     Indication: BACK PAIN
     Route: 048
  2. OXYCODONE HCL [Suspect]
     Indication: BACK PAIN
  3. ANASTROZOLE [Concomitant]
  4. DEXAMETHASONE [Concomitant]
     Indication: CAUDA EQUINA SYNDROME
     Route: 042
  5. DEXAMETHASONE [Concomitant]
     Route: 042
  6. MORPHINE [Concomitant]
     Indication: PAIN
     Route: 042
  7. HYDROMORPHONE HCL [Concomitant]
     Indication: PAIN
     Route: 042

REACTIONS (1)
  - DRUG INEFFECTIVE [None]
